FAERS Safety Report 8369737-6 (Version None)
Quarter: 2012Q2

REPORT INFORMATION
  Report Type: 
  Country: None (occurrence: None)
  Receive Date: 20120518
  Receipt Date: 20120510
  Transmission Date: 20120825
  Serious: Yes (Hospitalization)
  Sender: FDA-Public Use
  Company Number: ES-SANOFI-AVENTIS-2012SA033328

PATIENT
  Age: 88 Year
  Sex: Female

DRUGS (9)
  1. FUROSEMIDE [Suspect]
     Route: 048
     Dates: start: 20070101
  2. ENALAPRIL ^CINFA^ [Suspect]
     Route: 048
     Dates: start: 20070101
  3. SINTROM [Concomitant]
     Route: 048
  4. ISOSORBIDE MONONITRATE [Concomitant]
     Route: 048
  5. ALDACTONE [Suspect]
     Route: 048
     Dates: start: 20070101
  6. PRAVASTATIN [Concomitant]
     Route: 048
  7. SEDOTIME [Concomitant]
     Route: 048
  8. LORAZEPAM [Concomitant]
     Route: 048
  9. ACETAMINOPHEN [Concomitant]
     Route: 048

REACTIONS (3)
  - ACIDOSIS [None]
  - HYPERKALAEMIA [None]
  - HYPONATRAEMIA [None]
